FAERS Safety Report 8078535-2 (Version None)
Quarter: 2012Q1

REPORT INFORMATION
  Report Type: 
  Country: None (occurrence: None)
  Receive Date: 20120124
  Receipt Date: 20120109
  Transmission Date: 20120608
  Serious: Yes (Hospitalization, Other)
  Sender: FDA-Public Use
  Company Number: 2012P1002498

PATIENT
  Age: 46 Year
  Sex: Female

DRUGS (3)
  1. ZIPRASIDONE HYDROCHLORIDE [Concomitant]
  2. LITHIUM CARBONATE [Suspect]
     Indication: HALLUCINATIONS, MIXED
     Dosage: 600 MG;QD;
  3. RISPERIDONE [Concomitant]

REACTIONS (24)
  - IMPAIRED SELF-CARE [None]
  - AGITATION [None]
  - CONFUSIONAL STATE [None]
  - VERBAL ABUSE [None]
  - SKIN WARM [None]
  - HAEMOGLOBIN DECREASED [None]
  - HAEMODIALYSIS [None]
  - DELIRIUM [None]
  - TREMOR [None]
  - TACHYPHRENIA [None]
  - PRESSURE OF SPEECH [None]
  - ALANINE AMINOTRANSFERASE INCREASED [None]
  - RESTLESSNESS [None]
  - HYPERHIDROSIS [None]
  - DEHYDRATION [None]
  - OEDEMA PERIPHERAL [None]
  - DISORIENTATION [None]
  - HALLUCINATIONS, MIXED [None]
  - WHITE BLOOD CELL COUNT INCREASED [None]
  - HYPERTHYROIDISM [None]
  - TOXICITY TO VARIOUS AGENTS [None]
  - TACHYCARDIA [None]
  - MENTAL STATUS CHANGES [None]
  - PLATELET COUNT DECREASED [None]
